FAERS Safety Report 6385936-7 (Version None)
Quarter: 2009Q4

REPORT INFORMATION
  Report Type: 
  Country: None (occurrence: None)
  Receive Date: 20091002
  Receipt Date: 20090112
  Transmission Date: 20100525
  Serious: No
  Sender: FDA-Public Use
  Company Number: US-ASTRAZENECA-2009UW00992

PATIENT
  Age: 66 Year
  Sex: Female
  Weight: 86.2 kg

DRUGS (5)
  1. ARIMIDEX [Suspect]
     Indication: BREAST CANCER
     Dosage: UNKNOWN
     Route: 048
     Dates: start: 20060401
  2. LOVASTATIN [Suspect]
     Route: 065
  3. LOVASTATIN [Suspect]
     Route: 065
  4. QUIVARE [Concomitant]
  5. PEPESID [Concomitant]

REACTIONS (2)
  - HOT FLUSH [None]
  - MUSCLE SPASMS [None]
